FAERS Safety Report 24306738 (Version 1)
Quarter: 2024Q3

REPORT INFORMATION
  Report Type: Spontaneous
  Country: US (occurrence: None)
  Receive Date: 20240910
  Receipt Date: 20240910
  Transmission Date: 20241017
  Serious: Yes (Life-Threatening, Hospitalization, Disabling, Other)
  Sender: Public
  Company Number: None

PATIENT
  Age: 53 Year
  Sex: Female
  Weight: 49.9 kg

DRUGS (2)
  1. MULTIHANCE [Suspect]
     Active Substance: GADOBENATE DIMEGLUMINE
     Indication: Magnetic resonance imaging
     Dosage: 10 UL
     Dates: start: 20130903, end: 20141215
  2. GADAVIST [Suspect]
     Active Substance: GADOBUTROL
     Dates: start: 20130913

REACTIONS (1)
  - Nephrogenic systemic fibrosis [None]

NARRATIVE: CASE EVENT DATE: 20211021
